FAERS Safety Report 17110027 (Version 2)
Quarter: 2019Q4

REPORT INFORMATION
  Report Type: Spontaneous
  Country: CN (occurrence: CN)
  Receive Date: 20191204
  Receipt Date: 20191210
  Transmission Date: 20200122
  Serious: Yes (Disabling, Other)
  Sender: FDA-Public Use
  Company Number: CN-ALEMBIC PHARMACUETICALS LIMITED-2019SCAL000975

PATIENT

DRUGS (3)
  1. SODIUM VALPROATE [Interacting]
     Active Substance: VALPROATE SODIUM
     Indication: EPILEPSY
     Dosage: 500 MILLIGRAM, BID
     Route: 048
  2. CLONAZEPAM. [Suspect]
     Active Substance: CLONAZEPAM
     Dosage: 2 MILLIGRAM, BID
     Route: 048
  3. SODIUM VALPROATE [Interacting]
     Active Substance: VALPROATE SODIUM
     Indication: GENERALISED TONIC-CLONIC SEIZURE

REACTIONS (12)
  - Muscular weakness [Not Recovered/Not Resolved]
  - Fatigue [Not Recovered/Not Resolved]
  - Myalgia [Not Recovered/Not Resolved]
  - Gait disturbance [Not Recovered/Not Resolved]
  - Mitochondrial myopathy acquired [Not Recovered/Not Resolved]
  - Myopathy toxic [Not Recovered/Not Resolved]
  - Blood creatine phosphokinase increased [Recovering/Resolving]
  - Globulins increased [Unknown]
  - Ataxia [Not Recovered/Not Resolved]
  - Bedridden [Not Recovered/Not Resolved]
  - Drug interaction [Unknown]
  - Somnolence [Unknown]
